FAERS Safety Report 11367667 (Version 1)
Quarter: 2015Q3

REPORT INFORMATION
  Report Type: Spontaneous
  Country: US (occurrence: US)
  Receive Date: 20150811
  Receipt Date: 20150811
  Transmission Date: 20151125
  Serious: No
  Sender: FDA-Public Use
  Company Number: US-ELI_LILLY_AND_COMPANY-US201205010777

PATIENT
  Sex: Male

DRUGS (3)
  1. AXIRON [Suspect]
     Active Substance: TESTOSTERONE
     Dosage: 60 MG DAILY
     Route: 062
     Dates: start: 201111
  2. AXIRON [Suspect]
     Active Substance: TESTOSTERONE
     Dosage: 120 MG DAILY
  3. AXIRON [Suspect]
     Active Substance: TESTOSTERONE
     Dosage: 60 MG DAILY

REACTIONS (2)
  - Sleep apnoea syndrome [Not Recovered/Not Resolved]
  - Snoring [Not Recovered/Not Resolved]
